FAERS Safety Report 18634125 (Version 1)
Quarter: 2020Q4

REPORT INFORMATION
  Report Type: Spontaneous
  Country: US (occurrence: US)
  Receive Date: 20201218
  Receipt Date: 20201218
  Transmission Date: 20210114
  Serious: Yes (Hospitalization)
  Sender: FDA-Public Use
  Company Number: US-TEVA-2020-US-1858867

PATIENT
  Age: 71 Year
  Sex: Female

DRUGS (8)
  1. PREDNISONE. [Suspect]
     Active Substance: PREDNISONE
     Indication: RADIATION SKIN INJURY
     Dosage: 20 MILLIGRAM DAILY; ALSO PREMEDICATED FOR CYCLE 2 OF CHEMOTHERAPY
     Route: 048
  2. PREDNISONE. [Suspect]
     Active Substance: PREDNISONE
     Indication: ORGANISING PNEUMONIA
     Dosage: 60 MILLIGRAM DAILY;
     Route: 065
  3. DOCETAXEL. [Suspect]
     Active Substance: DOCETAXEL
     Indication: INVASIVE DUCTAL BREAST CARCINOMA
     Dosage: ADJUVANT CHEMOTHERAPY; RECEIVED 4 CYCLES
     Route: 065
  4. LETROZOLE. [Suspect]
     Active Substance: LETROZOLE
     Indication: INVASIVE DUCTAL BREAST CARCINOMA
     Route: 065
  5. PREDNISONE. [Suspect]
     Active Substance: PREDNISONE
     Indication: CONDITION AGGRAVATED
     Dosage: 30 MILLIGRAM DAILY; DOSE INCREASED
     Route: 065
  6. CYCLOPHOSPHAMIDE. [Suspect]
     Active Substance: CYCLOPHOSPHAMIDE
     Indication: INVASIVE DUCTAL BREAST CARCINOMA
     Dosage: ADJUVANT CHEMOTHERAPY; RECEIVED 4 CYCLES
     Route: 065
  7. PREDNISONE. [Suspect]
     Active Substance: PREDNISONE
     Indication: RADIATION PNEUMONITIS
  8. SILVER SULFADIAZINE. [Concomitant]
     Active Substance: SILVER SULFADIAZINE
     Indication: RADIATION SKIN INJURY
     Route: 065

REACTIONS (5)
  - Radiation skin injury [Recovering/Resolving]
  - Organising pneumonia [Recovered/Resolved]
  - Insomnia [Unknown]
  - Weight increased [Unknown]
  - Blood glucose increased [Unknown]
